FAERS Safety Report 4268072-5 (Version None)
Quarter: 2004Q1

REPORT INFORMATION
  Report Type: 
  Country: None (occurrence: None)
  Receive Date: 20040109
  Receipt Date: 20040109
  Transmission Date: 20041129
  Serious: No
  Sender: FDA-Public Use
  Company Number: None

PATIENT
  Sex: Male
  Weight: 99.7913 kg

DRUGS (1)
  1. FLUOXETINE [Suspect]
     Indication: DEPRESSION
     Dosage: 40 PO QD
     Route: 048
     Dates: start: 20030601

REACTIONS (5)
  - DEPRESSION [None]
  - INSOMNIA [None]
  - MARKEDLY REDUCED DIETARY INTAKE [None]
  - NEGLECT OF PERSONAL APPEARANCE [None]
  - PHARMACEUTICAL PRODUCT COMPLAINT [None]
